FAERS Safety Report 10257697 (Version 1)
Quarter: 2014Q2

REPORT INFORMATION
  Report Type: Spontaneous
  Country: BR (occurrence: BR)
  Receive Date: 20140625
  Receipt Date: 20140625
  Transmission Date: 20141212
  Serious: Yes (Death)
  Sender: FDA-Public Use
  Company Number: BR-NOVOPROD-413570

PATIENT
  Age: 7 Year
  Sex: Female

DRUGS (1)
  1. NOVOSEVEN [Suspect]
     Indication: CONGENITAL THROMBOCYTE DISORDER
     Dosage: UNK
     Route: 065

REACTIONS (1)
  - Haemorrhage [Fatal]
